FAERS Safety Report 5171616-2 (Version None)
Quarter: 2006Q4

REPORT INFORMATION
  Report Type: 
  Country: None (occurrence: None)
  Receive Date: 20061213
  Receipt Date: 20061013
  Transmission Date: 20070319
  Serious: Yes (Hospitalization)
  Sender: FDA-Public Use
  Company Number: CL-ABBOTT-06P-034-0346978-00

PATIENT
  Sex: Female

DRUGS (2)
  1. KALETRA [Suspect]
     Indication: HIV INFECTION
     Dosage: 1000/266
     Route: 048
     Dates: start: 20060912
  2. EFAVIRENZ [Concomitant]
     Indication: HIV INFECTION
     Route: 048

REACTIONS (4)
  - CHEST PAIN [None]
  - PAIN [None]
  - PERICARDITIS [None]
  - PYREXIA [None]
